FAERS Safety Report 8108324-1 (Version None)
Quarter: 2012Q1

REPORT INFORMATION
  Report Type: 
  Country: None (occurrence: None)
  Receive Date: 20120202
  Receipt Date: 20120124
  Transmission Date: 20120608
  Serious: Yes (Death)
  Sender: FDA-Public Use
  Company Number: PHHY2012FR006051

PATIENT
  Sex: Male
  Weight: 92 kg

DRUGS (13)
  1. ALISKIREN [Suspect]
     Indication: RENAL FAILURE
  2. ANGIOTENSIN II ANTAGONISTS [Concomitant]
  3. OLMESARTAN MEDOXOMIL [Concomitant]
     Indication: HYPERTENSION
     Dosage: 200 MG, QD
     Route: 048
     Dates: start: 20101220
  4. INSULIN [Concomitant]
     Dates: start: 20090101
  5. ALISKIREN [Suspect]
     Indication: PROTEINURIA
  6. DURETIC [Concomitant]
  7. HMG COA REDUCTASE INHIBITORS [Concomitant]
  8. BETA BLOCKING AGENTS [Concomitant]
  9. LASIX [Concomitant]
     Indication: OEDEMA PERIPHERAL
  10. LASIX [Concomitant]
     Indication: HYPERTENSION
     Dosage: 40 MG, QD
     Route: 048
     Dates: start: 20110113
  11. ALISKIREN [Suspect]
     Indication: HYPERTENSION
     Dosage: 150 MG, QD
     Dates: start: 20100401
  12. PLATELET AGGREGATION INHIBITORS [Concomitant]
  13. ALISKIREN [Suspect]
     Indication: DIABETES MELLITUS
     Dosage: 300 MG, QD

REACTIONS (2)
  - LUNG CANCER METASTATIC [None]
  - METASTASES TO CENTRAL NERVOUS SYSTEM [None]
